FAERS Safety Report 19272161 (Version 3)
Quarter: 2021Q2

REPORT INFORMATION
  Report Type: Spontaneous
  Country: US (occurrence: US)
  Receive Date: 20210518
  Receipt Date: 20210625
  Transmission Date: 20210717
  Serious: Yes (Other)
  Sender: FDA-Public Use
  Company Number: US-ALXN-A202105692

PATIENT
  Sex: Female

DRUGS (3)
  1. MESTINON [Suspect]
     Active Substance: PYRIDOSTIGMINE BROMIDE
     Indication: PRODUCT USED FOR UNKNOWN INDICATION
     Dosage: UNK
     Route: 065
  2. MESTINON [Suspect]
     Active Substance: PYRIDOSTIGMINE BROMIDE
     Dosage: UNK, PRN (TID)
     Route: 065
  3. SOLIRIS [Suspect]
     Active Substance: ECULIZUMAB
     Indication: MYASTHENIA GRAVIS
     Dosage: UNK
     Route: 065

REACTIONS (11)
  - Feeling abnormal [Unknown]
  - Gait disturbance [Unknown]
  - Myasthenia gravis [Unknown]
  - Muscular weakness [Unknown]
  - Myalgia [Unknown]
  - Asthenopia [Unknown]
  - Cholinergic syndrome [Unknown]
  - Arthralgia [Unknown]
  - Vein disorder [Unknown]
  - Dyspnoea [Unknown]
  - Pain in extremity [Unknown]
